FAERS Safety Report 7099521-5 (Version None)
Quarter: 2010Q4

REPORT INFORMATION
  Report Type: 
  Country: None (occurrence: None)
  Receive Date: 20101112
  Receipt Date: 20081017
  Transmission Date: 20110411
  Serious: No
  Sender: FDA-Public Use
  Company Number: US-KINGPHARMUSA00001-K200801218

PATIENT
  Sex: Female

DRUGS (2)
  1. LEVOXYL [Suspect]
     Indication: THYROID DISORDER
     Dosage: 125 MCG, UNK
     Route: 048
  2. LEVOXYL [Suspect]
     Dosage: 137 MCG, UNK
     Route: 048

REACTIONS (3)
  - FORMICATION [None]
  - HEART RATE INCREASED [None]
  - MENORRHAGIA [None]
